FAERS Safety Report 12422391 (Version 2)
Quarter: 2016Q2

REPORT INFORMATION
  Report Type: Spontaneous
  Country: IT (occurrence: IT)
  Receive Date: 20160601
  Receipt Date: 20160609
  Transmission Date: 20160815
  Serious: Yes (Other)
  Sender: FDA-Public Use
  Company Number: IT-ASTRAZENECA-2016SE55986

PATIENT
  Age: 22342 Day
  Sex: Male
  Weight: 82 kg

DRUGS (7)
  1. CARDIOASPIRIN [Concomitant]
     Active Substance: ASPIRIN
  2. TOTALIP [Concomitant]
     Active Substance: ATORVASTATIN
  3. PANTORC [Concomitant]
     Active Substance: PANTOPRAZOLE SODIUM
  4. TAREG [Concomitant]
     Active Substance: VALSARTAN
  5. PROCORALAN [Concomitant]
     Active Substance: IVABRADINE
     Route: 048
  6. BRILIQUE [Suspect]
     Active Substance: TICAGRELOR
     Indication: ACUTE CORONARY SYNDROME
     Route: 048
  7. TILDIEM [Concomitant]
     Active Substance: DILTIAZEM HYDROCHLORIDE

REACTIONS (2)
  - Myocardial infarction [Unknown]
  - Medication residue present [Unknown]

NARRATIVE: CASE EVENT DATE: 20150406
